FAERS Safety Report 5393985-0 (Version None)
Quarter: 2007Q3

REPORT INFORMATION
  Report Type: 
  Country: None (occurrence: None)
  Receive Date: 20070719
  Receipt Date: 20070719
  Transmission Date: 20080115
  Serious: Yes (Hospitalization)
  Sender: FDA-Public Use
  Company Number: None

PATIENT
  Age: 46 Year
  Sex: Male

DRUGS (4)
  1. METFORMIN HCL [Suspect]
     Indication: ANGINA UNSTABLE
     Dosage: ORAL
     Route: 048
  2. METFORMIN HCL [Suspect]
     Indication: TYPE 2 DIABETES MELLITUS
     Dosage: ORAL
     Route: 048
  3. BLINDED STUDY MEDICATION (TABLET) [Suspect]
     Indication: ANGINA UNSTABLE
     Dosage: 2 DOSAGE FORMS, 1 D ORAL
     Route: 048
     Dates: start: 20060116
  4. BLINDED STUDY MEDICATION (TABLET) [Suspect]
     Indication: TYPE 2 DIABETES MELLITUS
     Dosage: 2 DOSAGE FORMS, 1 D ORAL
     Route: 048
     Dates: start: 20060116

REACTIONS (1)
  - ANGINA UNSTABLE [None]
